FAERS Safety Report 9849365 (Version 2)
Quarter: 2014Q1

REPORT INFORMATION
  Report Type: Spontaneous
  Country: US (occurrence: US)
  Receive Date: 20140128
  Receipt Date: 20140128
  Transmission Date: 20141002
  Serious: No
  Sender: FDA-Public Use
  Company Number: US-TEVA-440448USA

PATIENT
  Sex: Female

DRUGS (2)
  1. DAUNORUBICIN [Suspect]
     Dosage: FIRST COURSE
     Dates: start: 20131018
  2. DAUNORUBICIN [Suspect]
     Dosage: SECOND COURSE
     Dates: start: 20131020

REACTIONS (4)
  - Pyrexia [Unknown]
  - Hypotension [Unknown]
  - Medication error [Unknown]
  - Haemoglobin decreased [Unknown]
